FAERS Safety Report 17258697 (Version 1)
Quarter: 2020Q1

REPORT INFORMATION
  Report Type: Spontaneous
  Country: US (occurrence: US)
  Receive Date: 20200110
  Receipt Date: 20200110
  Transmission Date: 20200409
  Serious: No
  Sender: FDA-Public Use
  Company Number: US-LANNETT COMPANY, INC.-US-2019LAN000927

PATIENT

DRUGS (3)
  1. DOXYCYCLINE. [Suspect]
     Active Substance: DOXYCYCLINE
     Dosage: 100 MG, QD (LANNETT PRODUCT)
     Route: 048
     Dates: start: 20190406, end: 20190407
  2. DOXYCYCLINE. [Suspect]
     Active Substance: DOXYCYCLINE
     Indication: INFECTION
     Dosage: 100 MG, BID (CAPSULE BY ANOTHER MANUFACTURER)
     Dates: start: 20190402, end: 20190403
  3. DOXYCYCLINE. [Suspect]
     Active Substance: DOXYCYCLINE
     Dosage: 100 MG, BID (LANNETT PRODUCT)
     Route: 048
     Dates: start: 20190404, end: 20190405

REACTIONS (3)
  - Urticaria [Recovering/Resolving]
  - Myalgia [Not Recovered/Not Resolved]
  - Malaise [Not Recovered/Not Resolved]
